FAERS Safety Report 10444016 (Version 1)
Quarter: 2014Q3

REPORT INFORMATION
  Report Type: Spontaneous
  Country: SE (occurrence: None)
  Receive Date: 20140908
  Receipt Date: 20140908
  Transmission Date: 20150326
  Serious: Yes (Hospitalization)
  Sender: FDA-Public Use
  Company Number: 2014240484

PATIENT
  Age: 77 Year
  Sex: Male

DRUGS (7)
  1. FRAGMIN [Suspect]
     Active Substance: DALTEPARIN SODIUM
     Indication: DEEP VEIN THROMBOSIS
     Route: 058
     Dates: start: 201308, end: 201407
  2. FRAGMIN [Suspect]
     Active Substance: DALTEPARIN SODIUM
     Indication: PULMONARY EMBOLISM
     Route: 058
     Dates: start: 201308, end: 201407
  3. QUESTRAN (COLESTYRAMINE) [Concomitant]
  4. CREON 10000 (PANCREATIN) [Concomitant]
  5. SALURES (BENDROFLUMETHIAZIDE) [Concomitant]
  6. DUROFERON (FERROUS SULFATE) [Concomitant]
  7. ENALAPRIL [Concomitant]
     Active Substance: ENALAPRIL

REACTIONS (5)
  - Hepatic fibrosis [None]
  - Abdominal discomfort [None]
  - Abdominal pain [None]
  - Hepatitis [None]
  - Hepatotoxicity [None]

NARRATIVE: CASE EVENT DATE: 201405
